FAERS Safety Report 6127032-X (Version None)
Quarter: 2009Q1

REPORT INFORMATION
  Report Type: 
  Country: None (occurrence: None)
  Receive Date: 20090320
  Receipt Date: 20080612
  Transmission Date: 20090719
  Serious: Yes (Hospitalization)
  Sender: FDA-Public Use
  Company Number: JP-B.I. PHARMACEUTICALS,INC./RIDGEFIELD-2009-BP-03336NB

PATIENT
  Sex: Male
  Weight: 48 kg

DRUGS (2)
  1. MICARDIS [Suspect]
     Indication: HYPERTENSION
     Route: 048
     Dates: start: 20061019
  2. CALBLOCK [Concomitant]
     Indication: HYPERTENSION
     Dosage: 8MG
     Route: 048
     Dates: start: 20060819

REACTIONS (1)
  - ALCOHOLISM [None]
